FAERS Safety Report 9820610 (Version 1)
Quarter: 2014Q1

REPORT INFORMATION
  Report Type: Report from Study
  Country: CA (occurrence: CA)
  Receive Date: 20140116
  Receipt Date: 20140116
  Transmission Date: 20141002
  Serious: Yes (Hospitalization)
  Sender: FDA-Public Use
  Company Number: CA-CELGENEUS-028-22393-14011102

PATIENT
  Age: 28 Year
  Sex: Female

DRUGS (11)
  1. ISTODAX [Suspect]
     Indication: PERIPHERAL T-CELL LYMPHOMA UNSPECIFIED
     Route: 041
     Dates: start: 20130823
  2. ISTODAX [Suspect]
     Route: 041
     Dates: start: 20130920
  3. ISTODAX [Suspect]
     Route: 041
     Dates: start: 20131018
  4. ISTODAX [Suspect]
     Route: 041
     Dates: start: 20131125
  5. RAMIPRIL [Concomitant]
     Indication: PRODUCT USED FOR UNKNOWN INDICATION
     Dosage: 15 MILLIGRAM
     Route: 065
     Dates: start: 20131204
  6. CARVEDILOL [Concomitant]
     Indication: CARDIOMYOPATHY
     Dosage: 3.125 MILLIGRAM
     Route: 065
     Dates: start: 20131204
  7. GCSF [Concomitant]
     Indication: PROPHYLAXIS
     Route: 065
  8. BOWEL MANAGEMENT MEDICATION [Concomitant]
     Indication: PRODUCT USED FOR UNKNOWN INDICATION
     Route: 065
  9. ANTI NAUSEA MEDICATION [Concomitant]
     Indication: PRODUCT USED FOR UNKNOWN INDICATION
     Route: 065
  10. VANCOMYCIN [Concomitant]
     Indication: PRODUCT USED FOR UNKNOWN INDICATION
     Route: 065
  11. FLUID [Concomitant]
     Indication: BLOOD PRESSURE
     Route: 065

REACTIONS (4)
  - Cardiomyopathy [Unknown]
  - Septic shock [Unknown]
  - Pneumonia [Unknown]
  - Peripheral T-cell lymphoma unspecified [Unknown]
